FAERS Safety Report 12114163 (Version 1)
Quarter: 2016Q1

REPORT INFORMATION
  Report Type: Spontaneous
  Country: US (occurrence: None)
  Receive Date: 20160224
  Receipt Date: 20160224
  Transmission Date: 20160526
  Serious: Yes (Other)
  Sender: FDA-Public Use
  Company Number: None

PATIENT

DRUGS (1)
  1. MALATHION .05% TARO [Suspect]
     Active Substance: MALATHION
     Dosage: APPLIED TO A SURFACE, USUALLY THE SKIN

REACTIONS (2)
  - Product quality issue [None]
  - Product odour abnormal [None]

NARRATIVE: CASE EVENT DATE: 20160223
